FAERS Safety Report 18551394 (Version 1)
Quarter: 2020Q4

REPORT INFORMATION
  Report Type: Spontaneous
  Country: PL (occurrence: PL)
  Receive Date: 20201126
  Receipt Date: 20201126
  Transmission Date: 20210114
  Serious: Yes (Hospitalization, Other)
  Sender: FDA-Public Use
  Company Number: NVSC2020PL307625

PATIENT
  Age: 41 Year
  Sex: Male

DRUGS (2)
  1. ENTRESTO [Suspect]
     Active Substance: SACUBITRIL\VALSARTAN
     Indication: PRODUCT USED FOR UNKNOWN INDICATION
     Dosage: 100 MG, BID (49/51 MG)
     Route: 065
  2. ENTRESTO [Suspect]
     Active Substance: SACUBITRIL\VALSARTAN
     Dosage: 200 MG, BID (97/103 MG)
     Route: 065

REACTIONS (11)
  - Cardiac failure [Unknown]
  - Insomnia [Unknown]
  - Peripheral swelling [Unknown]
  - Left ventricular enlargement [Recovering/Resolving]
  - Atrial enlargement [Recovering/Resolving]
  - Dyspnoea at rest [Unknown]
  - Pulmonary congestion [Unknown]
  - Illness [Unknown]
  - Left ventricular hypertrophy [Recovering/Resolving]
  - Ventricular hypokinesia [Recovering/Resolving]
  - Pleural effusion [Unknown]

NARRATIVE: CASE EVENT DATE: 201907
